FAERS Safety Report 4840734-8 (Version None)
Quarter: 2005Q4

REPORT INFORMATION
  Report Type: 
  Country: None (occurrence: None)
  Receive Date: 20051027
  Receipt Date: 20050314
  Transmission Date: 20060501
  Serious: Yes (Other)
  Sender: FDA-Public Use
  Company Number: HQWYE204116JUL04

PATIENT
  Sex: Female
  Weight: 60.84 kg

DRUGS (2)
  1. PREMARIN [Suspect]
     Dates: start: 19850101, end: 20040101
  2. PROVERA [Suspect]
     Dates: start: 19850101, end: 19860101

REACTIONS (1)
  - OVARIAN CANCER [None]
